FAERS Safety Report 23865272 (Version 1)
Quarter: 2024Q2

REPORT INFORMATION
  Report Type: Spontaneous
  Country: US (occurrence: US)
  Receive Date: 20240517
  Receipt Date: 20240517
  Transmission Date: 20240716
  Serious: No
  Sender: FDA-Public Use
  Company Number: US-APOTEX-2024AP005876

PATIENT
  Sex: Female

DRUGS (9)
  1. ARIPIPRAZOLE [Suspect]
     Active Substance: ARIPIPRAZOLE
     Indication: Affective disorder
     Dosage: 20 MILLIGRAM, QD
     Route: 065
  2. ARIPIPRAZOLE [Suspect]
     Active Substance: ARIPIPRAZOLE
     Dosage: 2 MILLIGRAM, QD
     Route: 065
  3. TRAZODONE [Suspect]
     Active Substance: TRAZODONE HYDROCHLORIDE
     Indication: Insomnia
     Dosage: 50 MILLIGRAM, Q.H.S. (AS NEEDED)
     Route: 065
  4. FLUOXETINE [Suspect]
     Active Substance: FLUOXETINE HYDROCHLORIDE
     Indication: Affective disorder
     Dosage: 20 MILLIGRAM, QD
     Route: 065
  5. FLUOXETINE [Suspect]
     Active Substance: FLUOXETINE HYDROCHLORIDE
     Indication: Post-traumatic stress disorder
     Dosage: 30 MILLIGRAM, QD
     Route: 065
  6. FLUOXETINE [Suspect]
     Active Substance: FLUOXETINE HYDROCHLORIDE
     Indication: Anxiety
  7. PRAZOSIN [Suspect]
     Active Substance: PRAZOSIN
     Indication: Flashback
     Dosage: 1 MILLIGRAM, Q.H.S.
     Route: 065
  8. PRAZOSIN [Suspect]
     Active Substance: PRAZOSIN
     Indication: Nightmare
     Dosage: 2 MILLIGRAM, Q.H.S.
     Route: 065
  9. PRAZOSIN [Suspect]
     Active Substance: PRAZOSIN
     Dosage: 1 MILLIGRAM, BID (MORNING AND AFTERNOON) ALONG WITH 2 MG Q.H.S.
     Route: 065

REACTIONS (3)
  - Condition aggravated [Unknown]
  - Tremor [Unknown]
  - Somnolence [Unknown]
